FAERS Safety Report 23693978 (Version 1)
Quarter: 2024Q2

REPORT INFORMATION
  Report Type: Spontaneous
  Country: DE (occurrence: DE)
  Receive Date: 20240401
  Receipt Date: 20240401
  Transmission Date: 20240716
  Serious: Yes (Other)
  Sender: FDA-Public Use
  Company Number: DE-BAUSCH-BL-2024-005211

PATIENT
  Age: 72 Year
  Sex: Female

DRUGS (3)
  1. XIFAXAN [Suspect]
     Active Substance: RIFAXIMIN
     Indication: Gastrointestinal bacterial overgrowth
     Dosage: BID, AFTERNOON AND EVENING, ONE EACH TIME
     Route: 065
     Dates: start: 202403, end: 202403
  2. XIFAXAN [Suspect]
     Active Substance: RIFAXIMIN
     Dosage: PRESCRIBED OVERDOSE
     Route: 065
     Dates: start: 202403, end: 202403
  3. XIFAXAN [Suspect]
     Active Substance: RIFAXIMIN
     Route: 065
     Dates: start: 202403, end: 202403

REACTIONS (5)
  - Dysarthria [Recovering/Resolving]
  - Confusional state [Recovering/Resolving]
  - Presyncope [Recovering/Resolving]
  - Dizziness [Recovering/Resolving]
  - Intentional product use issue [Unknown]

NARRATIVE: CASE EVENT DATE: 20240301
